FAERS Safety Report 11728321 (Version 1)
Quarter: 2015Q4

REPORT INFORMATION
  Report Type: Spontaneous
  Country: US (occurrence: US)
  Receive Date: 20151110
  Receipt Date: 20151110
  Transmission Date: 20160304
  Serious: No
  Sender: FDA-Public Use
  Company Number: US-ELI_LILLY_AND_COMPANY-US201109007263

PATIENT
  Sex: Female

DRUGS (1)
  1. FORTEO [Suspect]
     Active Substance: TERIPARATIDE
     Indication: OSTEOPOROSIS
     Dosage: 20 UG, QD
     Route: 065
     Dates: start: 2011

REACTIONS (5)
  - Food craving [Unknown]
  - Diabetes mellitus [Unknown]
  - Dizziness postural [Unknown]
  - Eating disorder [Unknown]
  - Migraine [Unknown]

NARRATIVE: CASE EVENT DATE: 2011
